FAERS Safety Report 7073927-2 (Version None)
Quarter: 2010Q4

REPORT INFORMATION
  Report Type: 
  Country: None (occurrence: None)
  Receive Date: 20101029
  Receipt Date: 20090922
  Transmission Date: 20110411
  Serious: Yes (Hospitalization)
  Sender: FDA-Public Use
  Company Number: PHEH2009US12551

PATIENT
  Sex: Female

DRUGS (4)
  1. EXJADE [Suspect]
     Indication: MYELODYSPLASTIC SYNDROME
     Dosage: 500 MG, TID
     Route: 048
     Dates: start: 20090729, end: 20090813
  2. EXJADE [Suspect]
     Indication: IRON OVERLOAD
  3. SENOKOT [Concomitant]
     Dosage: UNK, UNK
     Dates: start: 20080801
  4. FOLIC ACID [Concomitant]
     Dosage: 1 MG, QD
     Route: 048
     Dates: start: 20080801

REACTIONS (6)
  - ARTHRALGIA [None]
  - ERYTHEMA [None]
  - PETECHIAE [None]
  - PRURITUS [None]
  - RASH [None]
  - URINARY TRACT INFECTION [None]
